FAERS Safety Report 8456081-1 (Version None)
Quarter: 2012Q2

REPORT INFORMATION
  Report Type: 
  Country: None (occurrence: None)
  Receive Date: 20120621
  Receipt Date: 20120618
  Transmission Date: 20120825
  Serious: Yes (Death, Other)
  Sender: FDA-Public Use
  Company Number: PHEH2012US008813

PATIENT
  Sex: Female
  Weight: 74.8 kg

DRUGS (1)
  1. GLEEVEC [Suspect]
     Indication: ACUTE LYMPHOCYTIC LEUKAEMIA
     Dosage: 400 MG, BID
     Route: 048
     Dates: start: 20111024, end: 20120101

REACTIONS (3)
  - NEOPLASM PROGRESSION [None]
  - ACUTE LYMPHOCYTIC LEUKAEMIA [None]
  - NEOPLASM MALIGNANT [None]
